FAERS Safety Report 11556417 (Version 2)
Quarter: 2015Q4

REPORT INFORMATION
  Report Type: Spontaneous
  Country: US (occurrence: US)
  Receive Date: 20150925
  Receipt Date: 20151028
  Transmission Date: 20160304
  Serious: No
  Sender: FDA-Public Use
  Company Number: US-GLAXOSMITHKLINE-US2015GSK111114

PATIENT
  Sex: Male

DRUGS (1)
  1. LAMICTAL [Suspect]
     Active Substance: LAMOTRIGINE
     Indication: EPILEPSY
     Dosage: 100 MG, U
     Dates: start: 1999

REACTIONS (5)
  - Migraine [Recovered/Resolved]
  - Panic attack [Unknown]
  - Photopsia [Unknown]
  - Drug ineffective [Unknown]
  - Headache [Recovered/Resolved]
